FAERS Safety Report 23648029 (Version 1)
Quarter: 2024Q1

REPORT INFORMATION
  Report Type: Spontaneous
  Country: GB (occurrence: GB)
  Receive Date: 20240319
  Receipt Date: 20240319
  Transmission Date: 20240410
  Serious: Yes (Other)
  Sender: FDA-Public Use
  Company Number: None

PATIENT
  Age: 80 Year
  Sex: Female

DRUGS (4)
  1. OMEPRAZOLE [Suspect]
     Active Substance: OMEPRAZOLE
     Route: 065
  2. THIAMINE [Concomitant]
     Active Substance: THIAMINE
     Dosage: TIME INTERVAL: 0.33333333 DAYS
  3. CHOLECALCIFEROL [Concomitant]
     Active Substance: CHOLECALCIFEROL
     Dosage: 800UNIT - STOPPED AND CHANGED TO ADCAL DURING ADMISSION
  4. QUININE SULFATE [Concomitant]
     Active Substance: QUININE SULFATE
     Indication: Muscle spasms
     Dosage: NIGHT PRN

REACTIONS (2)
  - Femur fracture [Recovered/Resolved with Sequelae]
  - Fracture [Recovered/Resolved with Sequelae]
